FAERS Safety Report 6154236-2 (Version None)
Quarter: 2009Q2

REPORT INFORMATION
  Report Type: 
  Country: None (occurrence: None)
  Receive Date: 20090414
  Receipt Date: 20090331
  Transmission Date: 20091009
  Serious: No
  Sender: FDA-Public Use
  Company Number: US-AVENTIS-200912858US

PATIENT
  Age: 62 Year
  Sex: Male

DRUGS (2)
  1. LANTUS [Suspect]
     Dosage: DOSE: 20-27
     Route: 058
     Dates: start: 20070101
  2. NOVOLIN R [Suspect]
     Dosage: DOSE: UNK

REACTIONS (4)
  - BLOOD GLUCOSE DECREASED [None]
  - DYSARTHRIA [None]
  - GLYCOSYLATED HAEMOGLOBIN INCREASED [None]
  - INCOHERENT [None]
